FAERS Safety Report 22186664 (Version 8)
Quarter: 2023Q4

REPORT INFORMATION
  Report Type: Report from Study
  Country: CA (occurrence: CA)
  Receive Date: 20230407
  Receipt Date: 20231101
  Transmission Date: 20240109
  Serious: Yes (Death, Hospitalization)
  Sender: FDA-Public Use
  Company Number: CA-AMYLYX PHARMACEUTICALS, INC-AMX-001963

PATIENT
  Age: 73 Year
  Sex: Female

DRUGS (18)
  1. SODIUM PHENYLBUTYRATE\TAURURSODIOL [Suspect]
     Active Substance: SODIUM PHENYLBUTYRATE\TAURURSODIOL
     Indication: Amyotrophic lateral sclerosis
     Dosage: 1 SACHET ONCE DAILY FOR 3 WEEKS, THEN 1 SACHET TWICE DAILY
     Route: 048
     Dates: start: 20230309
  2. SODIUM PHENYLBUTYRATE\TAURURSODIOL [Suspect]
     Active Substance: SODIUM PHENYLBUTYRATE\TAURURSODIOL
     Indication: Amyotrophic lateral sclerosis
     Dosage: 1 SACHET ONCE DAILY FOR 3 WEEKS, THEN 1 SACHET TWICE DAILY
     Route: 050
     Dates: start: 20230727
  3. NITROGLYCERIN [Concomitant]
     Active Substance: NITROGLYCERIN
     Indication: Product used for unknown indication
     Dosage: TIME INTERVAL: AS NECESSARY: 0.4 MILLIGRAM, PRN
  4. PROBACLAC 50+ [Concomitant]
     Indication: Product used for unknown indication
     Dosage: UNK, BID
  5. HABITROL [Concomitant]
     Active Substance: NICOTINE
     Indication: Product used for unknown indication
     Dosage: 2 MILLIGRAM, QD
     Dates: start: 20220926
  6. LACTASE [Concomitant]
     Active Substance: LACTASE
     Indication: Product used for unknown indication
     Dosage: 3000 INTERNATIONAL UNIT
  7. BETAMETHASONE DIPROPIONATE [Concomitant]
     Active Substance: BETAMETHASONE DIPROPIONATE
     Indication: Product used for unknown indication
     Dosage: TIME INTERVAL: AS NECESSARY: 0.05+3% AS NEEDED FOR 2 DAY
  8. FUSIDIC ACID [Concomitant]
     Active Substance: FUSIDIC ACID
     Indication: Product used for unknown indication
     Dosage: 2 PERCENT, QD
  9. ASPIRIN [Concomitant]
     Active Substance: ASPIRIN
     Indication: Product used for unknown indication
     Dosage: 80 MILLIGRAM, QD
  10. CHOLECALCIFEROL [Concomitant]
     Active Substance: CHOLECALCIFEROL
     Indication: Product used for unknown indication
     Dosage: 10000 INTERNATIONAL UNIT, ONCE PER WEEK
  11. BIOCAL D CR [Concomitant]
     Indication: Product used for unknown indication
     Dosage: 500MG+400UI OD
  12. SYNTHROID [Concomitant]
     Active Substance: LEVOTHYROXINE SODIUM
     Indication: Product used for unknown indication
     Dosage: UNK
  13. ZOCOR [Concomitant]
     Active Substance: SIMVASTATIN
     Indication: Product used for unknown indication
     Dosage: 10 MILLIGRAM, QD
  14. PANTOPRAZOLE SODIUM [Concomitant]
     Active Substance: PANTOPRAZOLE SODIUM
     Indication: Product used for unknown indication
     Dosage: 40 MILLIGRAM, BID
  15. EMOLAX [SODIUM PICOSULFATE] [Concomitant]
     Indication: Product used for unknown indication
     Dosage: 17 MILLIGRAM, QD
  16. TYLENOL [Concomitant]
     Active Substance: ACETAMINOPHEN
     Indication: Product used for unknown indication
     Dosage: 650 MILLIGRAM, TID
  17. ROBAXACET [Concomitant]
     Active Substance: ACETAMINOPHEN\METHOCARBAMOL
     Indication: Product used for unknown indication
     Dosage: TIME INTERVAL: AS NECESSARY: 400MG+325 MG AS NEEDED FOR 4 DAYS, PRN
  18. NAPROXEN [Concomitant]
     Active Substance: NAPROXEN
     Indication: Product used for unknown indication
     Dosage: TIME INTERVAL: AS NECESSARY: 500 MILLIGRAM, PRN FOR 2 DAYS

REACTIONS (23)
  - Aspiration [Unknown]
  - Hypoxia [Fatal]
  - Feeding disorder [Unknown]
  - Lung disorder [Unknown]
  - Gastrointestinal disorder [Not Recovered/Not Resolved]
  - Malnutrition [Unknown]
  - Abdominal distension [Not Recovered/Not Resolved]
  - Urinary retention [Unknown]
  - General physical health deterioration [Unknown]
  - Abdominal pain upper [Not Recovered/Not Resolved]
  - Asthenia [Not Recovered/Not Resolved]
  - Bladder catheterisation [Unknown]
  - Periarthritis [Unknown]
  - Discomfort [Unknown]
  - Muscle strength abnormal [Unknown]
  - Phlebitis [Unknown]
  - Dysphagia [Unknown]
  - Dyspepsia [Unknown]
  - Fatigue [Unknown]
  - Malaise [Unknown]
  - Product solubility abnormal [Unknown]
  - Product use complaint [Not Recovered/Not Resolved]
  - Product dose omission issue [Unknown]

NARRATIVE: CASE EVENT DATE: 20230201
